FAERS Safety Report 15263862 (Version 1)
Quarter: 2018Q3

REPORT INFORMATION
  Report Type: Spontaneous
  Country: US (occurrence: US)
  Receive Date: 20180720
  Receipt Date: 20180720
  Transmission Date: 20181010
  Serious: Yes (Disabling)
  Sender: FDA-Public Use
  Company Number: None

PATIENT
  Age: 54 Year
  Sex: Female
  Weight: 58.5 kg

DRUGS (2)
  1. CIPROFLOXACIN 400MG [Suspect]
     Active Substance: CIPROFLOXACIN
     Indication: DIVERTICULITIS
     Dosage: ?          QUANTITY:2 TABLET(S);?
     Route: 048
     Dates: start: 20180414, end: 20180720
  2. ARMOUR THYROID [Concomitant]
     Active Substance: THYROID, PORCINE

REACTIONS (18)
  - Fatigue [None]
  - Nightmare [None]
  - Fibromyalgia [None]
  - Drug hypersensitivity [None]
  - Diverticulitis [None]
  - Pruritus generalised [None]
  - Fear [None]
  - Pain in extremity [None]
  - Impaired work ability [None]
  - Tendonitis [None]
  - Diverticulum intestinal [None]
  - Condition aggravated [None]
  - Arthralgia [None]
  - Adverse drug reaction [None]
  - Pain [None]
  - Nausea [None]
  - Headache [None]
  - Insomnia [None]

NARRATIVE: CASE EVENT DATE: 20180414
